FAERS Safety Report 7576988-7 (Version None)
Quarter: 2011Q2

REPORT INFORMATION
  Report Type: 
  Country: None (occurrence: None)
  Receive Date: 20110628
  Receipt Date: 20110110
  Transmission Date: 20111010
  Serious: Yes (Hospitalization)
  Sender: FDA-Public Use
  Company Number: US-BAYER-201038792NA

PATIENT
  Age: 16 Year
  Sex: Female
  Weight: 66.667 kg

DRUGS (16)
  1. AMITRIPTYLINE HCL [Concomitant]
     Indication: MIGRAINE
     Dosage: UNK UNK, HS
     Route: 048
  2. SEASONALE [Concomitant]
     Dosage: UNK
     Dates: start: 20080401
  3. CYMBALTA [Concomitant]
     Indication: MOOD SWINGS
     Dosage: UNK
     Dates: start: 20090101
  4. ACETAMINOPHEN W/ CODEINE [Concomitant]
     Route: 048
  5. NITROFURANT MACRO [Concomitant]
     Route: 048
  6. YAZ [Suspect]
     Dosage: UNK
     Dates: start: 20090101, end: 20090301
  7. CYMBALTA [Concomitant]
     Indication: ANXIETY
     Dosage: 60 MG, OM
     Route: 048
  8. ZOLPIDEM TARTRATE [Concomitant]
     Route: 048
  9. YAZ [Suspect]
     Indication: PREMENSTRUAL SYNDROME
     Dosage: UNK UNK, UNK
     Route: 048
     Dates: start: 20060713, end: 20061201
  10. YAZ [Suspect]
     Dosage: UNK
     Route: 048
     Dates: start: 20090101, end: 20090305
  11. MACROBID [Concomitant]
     Indication: URINARY TRACT INFECTION
  12. AMITRIPTYLINE HCL [Concomitant]
     Dosage: UNK
     Dates: start: 20070101
  13. NYSTATIN [Concomitant]
     Dosage: 100.000 UNK, UNK
  14. ZITHROMAX [Concomitant]
  15. ZOLOFT [Concomitant]
     Indication: ANXIETY
     Dosage: UNK
     Dates: start: 20050101, end: 20090101
  16. CEFACLOR [Concomitant]
     Dosage: 500 MG, UNK
     Route: 048

REACTIONS (10)
  - MIGRAINE [None]
  - DIZZINESS [None]
  - GALLBLADDER CHOLESTEROLOSIS [None]
  - NAUSEA [None]
  - MOOD SWINGS [None]
  - DEPRESSION [None]
  - AFFECT LABILITY [None]
  - MENTAL DISORDER [None]
  - GALLBLADDER DISORDER [None]
  - ANXIETY [None]
